FAERS Safety Report 21044329 (Version 1)
Quarter: 2022Q3

REPORT INFORMATION
  Report Type: Spontaneous
  Country: US (occurrence: None)
  Receive Date: 20220704
  Receipt Date: 20220704
  Transmission Date: 20221026
  Serious: Yes (Other)
  Sender: FDA-Public Use
  Company Number: None

PATIENT
  Age: 68 Year
  Sex: Male
  Weight: 86.85 kg

DRUGS (8)
  1. ORGOVYX [Suspect]
     Active Substance: RELUGOLIX
     Indication: Prostate cancer
     Route: 048
     Dates: start: 20220701
  2. CARVEDILOL [Concomitant]
     Active Substance: CARVEDILOL
  3. Clopedigril [Concomitant]
  4. Atorvatatin [Concomitant]
  5. AMLODIPINE [Concomitant]
     Active Substance: AMLODIPINE BESYLATE
  6. Lisinorpil [Concomitant]
  7. MULTI [Concomitant]
  8. ASPIRIN [Concomitant]
     Active Substance: ASPIRIN

REACTIONS (8)
  - Erythema [None]
  - Chest discomfort [None]
  - Confusional state [None]
  - Hyperhidrosis [None]
  - Disturbance in attention [None]
  - Chest pain [None]
  - Arthralgia [None]
  - Prostatic specific antigen increased [None]

NARRATIVE: CASE EVENT DATE: 20220701
